FAERS Safety Report 23871740 (Version 2)
Quarter: 2024Q2

REPORT INFORMATION
  Report Type: Report from Study
  Country: DE (occurrence: DE)
  Receive Date: 20240520
  Receipt Date: 20240522
  Transmission Date: 20240716
  Serious: Yes (Hospitalization)
  Sender: FDA-Public Use
  Company Number: DE-ABBVIE-5762246

PATIENT
  Sex: Male

DRUGS (2)
  1. CARBIDOPA\LEVODOPA [Suspect]
     Active Substance: CARBIDOPA\LEVODOPA
     Indication: Parkinson^s disease
     Dosage: MD: 9.0 ML, CRD: 4.2 ML/H, AFTERNOON DOSE 4.5 ML/H, ED: 2.0 ML.
     Route: 050
     Dates: start: 20230801, end: 2024
  2. CARBIDOPA\LEVODOPA [Suspect]
     Active Substance: CARBIDOPA\LEVODOPA
     Dosage: MD: 8.0 ML; CRD: 4.1 ML/H; AFTERNOON DOSAGE: 4.5 ML/H; ED: 3.5 ML.
     Route: 050
     Dates: start: 2024

REACTIONS (5)
  - Mobility decreased [Unknown]
  - Abdominal pain upper [Not Recovered/Not Resolved]
  - Therapeutic product effect variable [Unknown]
  - Stoma site inflammation [Unknown]
  - Stoma site infection [Unknown]

NARRATIVE: CASE EVENT DATE: 20240101
